FAERS Safety Report 23842141 (Version 3)
Quarter: 2024Q3

REPORT INFORMATION
  Report Type: Report from Study
  Country: US (occurrence: US)
  Receive Date: 20240510
  Receipt Date: 20240819
  Transmission Date: 20241016
  Serious: Yes (Other)
  Sender: MYLAN
  Company Number: US-MYLANLABS-2024M1042182

PATIENT
  Age: 21 Year
  Sex: Male
  Weight: 279 kg

DRUGS (6)
  1. CLOZAPINE [Suspect]
     Active Substance: CLOZAPINE
     Indication: Disruptive mood dysregulation disorder
     Dosage: 150 MILLIGRAM, QD
     Route: 065
  2. ARIPIPRAZOLE [Concomitant]
     Active Substance: ARIPIPRAZOLE
     Dosage: 1 DOSAGE FORM, QD (1 TABLET AT ONCE A DAY)
     Route: 065
  3. BENZTROPINE MESYLATE [Concomitant]
     Active Substance: BENZTROPINE MESYLATE
     Dosage: 1 DOSAGE FORM, BID (1 TABLET AT TWICE A DAY)
     Route: 065
  4. CLOZAPINE [Concomitant]
     Active Substance: CLOZAPINE
     Dosage: 1 DOSAGE FORM, QD (1 TABLET AT BEFORE BEDTIME)
     Route: 065
  5. DIVALPROEX SODIUM [Concomitant]
     Active Substance: DIVALPROEX SODIUM
     Dosage: 2 DOSAGE FORM, HS  (2 TABLETS AT BEDTIME)
     Route: 065
  6. HALOPERIDOL [Concomitant]
     Active Substance: HALOPERIDOL
     Dosage: 1 DOSAGE FORM, BID (1 TABLET AT TWICE A DAY)
     Route: 065

REACTIONS (2)
  - Neutropenia [Recovered/Resolved]
  - Adverse event [Unknown]

NARRATIVE: CASE EVENT DATE: 20240506
